FAERS Safety Report 18634393 (Version 1)
Quarter: 2020Q4

REPORT INFORMATION
  Report Type: Spontaneous
  Country: US (occurrence: US)
  Receive Date: 20201218
  Receipt Date: 20201218
  Transmission Date: 20210114
  Serious: Yes (Hospitalization)
  Sender: FDA-Public Use
  Company Number: None

PATIENT
  Age: 76 Year
  Sex: Female

DRUGS (16)
  1. VENCLEXTA [Suspect]
     Active Substance: VENETOCLAX
     Indication: ACUTE MYELOID LEUKAEMIA
     Route: 048
  2. ZOLPIDEM [Concomitant]
     Active Substance: ZOLPIDEM TARTRATE
  3. AMITRIPTYLINE [Concomitant]
     Active Substance: AMITRIPTYLINE
  4. LEVOTHYROXINE. [Concomitant]
     Active Substance: LEVOTHYROXINE
  5. SUCRALFATE. [Concomitant]
     Active Substance: SUCRALFATE
  6. GABAPENTIN. [Concomitant]
     Active Substance: GABAPENTIN
  7. ASPIRIN. [Concomitant]
     Active Substance: ASPIRIN
  8. QUETIAPINE. [Concomitant]
     Active Substance: QUETIAPINE
  9. CELECOXIB. [Concomitant]
     Active Substance: CELECOXIB
  10. ALLOPURINOL. [Concomitant]
     Active Substance: ALLOPURINOL
  11. BUTALBITAL, APAP, CAFFEINE [Concomitant]
  12. FERROUS SULFATE. [Concomitant]
     Active Substance: FERROUS SULFATE
  13. ONDANSETRON [Concomitant]
     Active Substance: ONDANSETRON
  14. FAMOTIDINE. [Concomitant]
     Active Substance: FAMOTIDINE
  15. HYDROMORPHONE [Concomitant]
     Active Substance: HYDROMORPHONE
  16. ALENDRONATE [Concomitant]
     Active Substance: ALENDRONATE SODIUM

REACTIONS (2)
  - Fall [None]
  - Diarrhoea [None]

NARRATIVE: CASE EVENT DATE: 20201123
